FAERS Safety Report 7006630-5 (Version None)
Quarter: 2010Q3

REPORT INFORMATION
  Report Type: 
  Country: None (occurrence: None)
  Receive Date: 20100921
  Receipt Date: 20100921
  Transmission Date: 20110219
  Serious: No
  Sender: FDA-Public Use
  Company Number: None

PATIENT
  Age: 66 Year
  Sex: Female

DRUGS (11)
  1. LETAIRIS [Suspect]
     Indication: PULMONARY ARTERIAL HYPERTENSION
     Dosage: 5MG DAILY ORALLY
     Route: 048
     Dates: start: 20100420, end: 20100628
  2. LETAIRIS [Concomitant]
  3. FUROSEMIDE [Concomitant]
  4. DILTIAZEM [Concomitant]
  5. VITAMIN D [Concomitant]
  6. FLONASE [Concomitant]
  7. LOSARTAN POTASSIUM [Concomitant]
  8. LOVASTATIN [Concomitant]
  9. PROAIR HFA [Concomitant]
  10. SPIRIVA [Concomitant]
  11. GLIPIZIDE [Concomitant]

REACTIONS (2)
  - NO THERAPEUTIC RESPONSE [None]
  - OEDEMA PERIPHERAL [None]
